FAERS Safety Report 9457694 (Version 1)
Quarter: 2013Q3

REPORT INFORMATION
  Report Type: Report from Study
  Country: US (occurrence: US)
  Receive Date: 20130814
  Receipt Date: 20130814
  Transmission Date: 20140515
  Serious: Yes (Other)
  Sender: FDA-Public Use
  Company Number: US-UCBSA-095329

PATIENT
  Age: 46 Year
  Sex: Female
  Weight: 64 kg

DRUGS (5)
  1. CIMZIA [Suspect]
     Indication: CROHN^S DISEASE
     Route: 058
     Dates: start: 20100506, end: 20130806
  2. CIMZIA [Suspect]
     Indication: CROHN^S DISEASE
     Route: 058
     Dates: start: 20090312, end: 20100422
  3. IMURAN [Concomitant]
     Dates: start: 2004, end: 200703
  4. IMURAN [Concomitant]
     Dates: start: 2010
  5. CORTIFOAM [Concomitant]
     Dates: start: 200907

REACTIONS (1)
  - Herpes zoster [Recovered/Resolved]
